FAERS Safety Report 6056491-6 (Version None)
Quarter: 2009Q1

REPORT INFORMATION
  Report Type: 
  Country: None (occurrence: None)
  Receive Date: 20090129
  Receipt Date: 20090119
  Transmission Date: 20090719
  Serious: Yes (Hospitalization)
  Sender: FDA-Public Use
  Company Number: PHHY2009MX02212

PATIENT
  Age: 58 Year
  Sex: Female

DRUGS (5)
  1. DIOVAN [Suspect]
     Indication: HYPERTENSION
     Dosage: 80 MG, BID
     Route: 048
     Dates: start: 20080101
  2. ISOSORBIDE DINITRATE [Concomitant]
     Dosage: 10 MG, TID
  3. PLAVIX [Concomitant]
     Dosage: 1 TABLET PER DAY
     Route: 048
  4. LIPITOR [Concomitant]
     Dosage: ONE TABLET PER DAY
     Route: 048
  5. ASPIRIN [Concomitant]
     Dosage: 1 TABLET PER DAY
     Route: 048

REACTIONS (8)
  - CATHETERISATION VENOUS [None]
  - CHEST PAIN [None]
  - DIZZINESS [None]
  - HEADACHE [None]
  - NAUSEA [None]
  - PAIN IN EXTREMITY [None]
  - PAIN IN JAW [None]
  - VASODILATION PROCEDURE [None]
